FAERS Safety Report 19996719 (Version 2)
Quarter: 2021Q4

REPORT INFORMATION
  Report Type: Spontaneous
  Country: CZ (occurrence: CZ)
  Receive Date: 20211025
  Receipt Date: 20211109
  Transmission Date: 20220303
  Serious: Yes (Hospitalization, Other)
  Sender: FDA-Public Use
  Company Number: CZ-TEVA-2021-CZ-1968930

PATIENT
  Sex: Female

DRUGS (12)
  1. FLUDARABINE [Suspect]
     Active Substance: FLUDARABINE PHOSPHATE
     Indication: Waldenstrom^s macroglobulinaemia
     Dosage: RECEIVED 2 CYCLES
     Route: 065
     Dates: start: 200605
  2. RITUXIMAB [Suspect]
     Active Substance: RITUXIMAB
     Indication: Waldenstrom^s macroglobulinaemia
     Dosage: RECEIVED 2 CYCLES
     Route: 065
     Dates: start: 200605
  3. CYCLOPHOSPHAMIDE [Suspect]
     Active Substance: CYCLOPHOSPHAMIDE
     Indication: Waldenstrom^s macroglobulinaemia
     Dosage: RECEIVED 2 CYCLES
     Route: 065
     Dates: start: 200605
  4. CYCLOPHOSPHAMIDE [Suspect]
     Active Substance: CYCLOPHOSPHAMIDE
     Dosage: RECEIVED 8 CYCLES
     Route: 065
     Dates: start: 201211
  5. BORTEZOMIB [Suspect]
     Active Substance: BORTEZOMIB
     Indication: Waldenstrom^s macroglobulinaemia recurrent
     Dosage: RECEIVED 8 CYCLES
     Route: 065
     Dates: start: 201211
  6. BORTEZOMIB [Suspect]
     Active Substance: BORTEZOMIB
     Dosage: RECEIVED 5 CYCLES
     Route: 065
     Dates: start: 201711
  7. DEXAMETHASONE [Suspect]
     Active Substance: DEXAMETHASONE
     Indication: Waldenstrom^s macroglobulinaemia recurrent
     Route: 065
     Dates: start: 201211
  8. DEXAMETHASONE [Suspect]
     Active Substance: DEXAMETHASONE
     Route: 065
     Dates: start: 201711
  9. DEXAMETHASONE [Suspect]
     Active Substance: DEXAMETHASONE
     Dosage: RECEIVED ON DAYS 1 AND 15 OF THE CYCLE
     Route: 065
     Dates: start: 201912
  10. BENDAMUSTINE [Suspect]
     Active Substance: BENDAMUSTINE
     Indication: Waldenstrom^s macroglobulinaemia recurrent
     Route: 065
     Dates: start: 201711
  11. BENDAMUSTINE [Suspect]
     Active Substance: BENDAMUSTINE
     Dosage: RECEIVED ON CYCLE DAYS 1 AND 15
     Route: 065
     Dates: start: 201912
  12. OBINUTUZUMAB [Suspect]
     Active Substance: OBINUTUZUMAB
     Indication: Waldenstrom^s macroglobulinaemia recurrent
     Dosage: ON DAY 1, OBINUTUZUMAB 100MG IN A SLOW INFUSION, AND ON THE NEXTDAY, 900MG WAS GIVEN; AFTERWARDS ...
     Route: 050
     Dates: start: 201912

REACTIONS (9)
  - Drug hypersensitivity [Recovered/Resolved]
  - Shock [Unknown]
  - Cytopenia [Unknown]
  - Neuropathy peripheral [Unknown]
  - Neutropenia [Not Recovered/Not Resolved]
  - Bronchospasm [Unknown]
  - Rhinitis [Unknown]
  - Conjunctivitis [Unknown]
  - Eczema [Unknown]
